FAERS Safety Report 10443429 (Version 2)
Quarter: 2014Q3

REPORT INFORMATION
  Report Type: Spontaneous
  Country: JP (occurrence: JP)
  Receive Date: 20140910
  Receipt Date: 20140910
  Transmission Date: 20150326
  Serious: Yes (Hospitalization, Other)
  Sender: FDA-Public Use
  Company Number: JP-009507513-2009SP043239

PATIENT
  Age: 1 Month
  Sex: Male
  Weight: 7.4 kg

DRUGS (3)
  1. AROGLYCEM [Suspect]
     Active Substance: DIAZOXIDE
     Dosage: 10 MG, BID
     Route: 048
     Dates: start: 20090506
  2. AROGLYCEM [Suspect]
     Active Substance: DIAZOXIDE
     Indication: HYPOGLYCAEMIA
     Dosage: 8 MG, BID
     Route: 048
     Dates: start: 20090503, end: 20090505
  3. AROGLYCEM [Suspect]
     Active Substance: DIAZOXIDE
     Dosage: 8 MG, BID
     Route: 048
     Dates: start: 200905, end: 20090721

REACTIONS (5)
  - Anaemia [Recovered/Resolved]
  - Hyperkalaemia [Recovered/Resolved]
  - Hypotension [Recovered/Resolved]
  - Hyponatraemia [Recovered/Resolved]
  - Oedema [Recovered/Resolved]

NARRATIVE: CASE EVENT DATE: 20090512
